FAERS Safety Report 5571071-4 (Version None)
Quarter: 2007Q4

REPORT INFORMATION
  Report Type: 
  Country: None (occurrence: None)
  Receive Date: 20071221
  Receipt Date: 20071218
  Transmission Date: 20080405
  Serious: Yes (Hospitalization)
  Sender: FDA-Public Use
  Company Number: CN-ASTRAZENECA-2007AP08004

PATIENT
  Age: 67 Year
  Sex: Female

DRUGS (5)
  1. ROPIVACAINE [Suspect]
     Indication: SPINAL ANAESTHESIA
     Dosage: SPINAL
     Route: 037
  2. ROPIVACAINE [Suspect]
     Indication: EPIDURAL ANAESTHESIA
     Dosage: SPINAL
     Route: 037
  3. ROPIVACAINE [Suspect]
     Dosage: EPIDURAL
     Route: 008
  4. ROPIVACAINE [Suspect]
     Dosage: EPIDURAL
     Route: 008
  5. GLUCOSE [Concomitant]
     Indication: ANAESTHESIA

REACTIONS (1)
  - NERVOUS SYSTEM DISORDER [None]
